FAERS Safety Report 11891451 (Version 1)
Quarter: 2016Q1

REPORT INFORMATION
  Report Type: Spontaneous
  Country: KR (occurrence: KR)
  Receive Date: 20160106
  Receipt Date: 20160106
  Transmission Date: 20160526
  Serious: Yes (Hospitalization)
  Sender: FDA-Public Use
  Company Number: KR-AMGEN-KORCT2015141058

PATIENT
  Age: 21 Year
  Sex: Male
  Weight: 47 kg

DRUGS (13)
  1. RENAGEL [Concomitant]
     Active Substance: SEVELAMER HYDROCHLORIDE
     Dosage: 1600 MG, UNK
     Route: 048
     Dates: start: 20101231
  2. RHONAL [Concomitant]
     Dosage: 200 MG, UNK
     Route: 042
     Dates: start: 20120921
  3. REGPARA [Suspect]
     Active Substance: CINACALCET HYDROCHLORIDE
     Indication: HYPERPARATHYROIDISM SECONDARY
     Dosage: 25 MG, QD
     Route: 048
     Dates: start: 20121117, end: 20121218
  4. NESP [Concomitant]
     Active Substance: DARBEPOETIN ALFA
     Indication: PRODUCT USED FOR UNKNOWN INDICATION
     Dosage: 60 MUG, UNK
     Dates: start: 20110103, end: 20121126
  5. CANDEMORE [Concomitant]
     Dosage: 8 MG, UNK
     Route: 048
     Dates: start: 20151115
  6. RENALMIN [Concomitant]
     Dosage: 2 TAB
     Route: 048
     Dates: start: 20121113
  7. STILNOX [Concomitant]
     Active Substance: ZOLPIDEM TARTRATE
     Dosage: 10 MG, UNK
     Route: 048
     Dates: start: 20121026
  8. RIVOTRIL [Concomitant]
     Active Substance: CLONAZEPAM
     Dosage: 0.5 MG, UNK
     Route: 048
     Dates: start: 20120921, end: 20121218
  9. TYLENOL [Concomitant]
     Active Substance: ACETAMINOPHEN
     Dosage: 1300 MG, UNK
     Route: 048
     Dates: start: 20121009, end: 20121118
  10. ANYDIPINE [Concomitant]
     Dosage: 10 MG, UNK
     Route: 048
     Dates: start: 20120921, end: 20121128
  11. DILATREND [Concomitant]
     Active Substance: CARVEDILOL
     Dosage: 12.5 MG, UNK
     Route: 048
     Dates: start: 20110412, end: 20121128
  12. UCERAX [Concomitant]
     Dosage: 20 MG, UNK
     Route: 048
     Dates: start: 20120724, end: 20121218
  13. ELEVIT PRONATAL                    /01730301/ [Concomitant]
     Dosage: 1 TAB
     Route: 048
     Dates: start: 20100917

REACTIONS (2)
  - Peritonitis [Recovered/Resolved]
  - Hypotension [Recovered/Resolved]

NARRATIVE: CASE EVENT DATE: 20121118
